FAERS Safety Report 9137427 (Version 1)
Quarter: 2013Q1

REPORT INFORMATION
  Report Type: Spontaneous
  Country: US (occurrence: US)
  Receive Date: 20130219
  Receipt Date: 20130219
  Transmission Date: 20140127
  Serious: No
  Sender: FDA-Public Use
  Company Number: US-BRISTOL-MYERS SQUIBB COMPANY-16820326

PATIENT
  Age: 49 Year
  Sex: Female
  Weight: 56.69 kg

DRUGS (13)
  1. ORENCIA [Suspect]
     Indication: RHEUMATOID ARTHRITIS
     Route: 058
     Dates: start: 201112
  2. LYRICA [Concomitant]
  3. FOLIC ACID [Concomitant]
  4. VITAMIN D [Concomitant]
  5. METHADONE [Concomitant]
  6. NAPROXEN [Concomitant]
  7. DOCUSATE [Concomitant]
  8. DESIPRAMINE [Concomitant]
  9. PLAQUENIL [Concomitant]
  10. METHOTREXATE [Concomitant]
  11. PREMPRO [Concomitant]
  12. OMEPRAZOLE [Concomitant]
  13. VICODIN [Concomitant]

REACTIONS (1)
  - Oropharyngeal pain [Recovered/Resolved]
